FAERS Safety Report 25885964 (Version 1)
Quarter: 2025Q4

REPORT INFORMATION
  Report Type: Spontaneous
  Country: US (occurrence: None)
  Receive Date: 20251005
  Receipt Date: 20251005
  Transmission Date: 20260117
  Serious: Yes (Hospitalization)
  Sender: FDA-CTU
  Company Number: None

PATIENT
  Age: 74 Year
  Sex: Male
  Weight: 78 kg

DRUGS (4)
  1. LORAZEPAM [Suspect]
     Active Substance: LORAZEPAM
     Indication: Anxiety
     Dosage: OTHER FREQUENCY : ONCE;?
     Route: 042
     Dates: start: 20250818, end: 20250818
  2. NITROGLYCERIN [Concomitant]
     Active Substance: NITROGLYCERIN
  3. ALBUTEROL\IPRATROPIUM [Concomitant]
     Active Substance: ALBUTEROL\IPRATROPIUM
  4. ALBUTEROL [Concomitant]
     Active Substance: ALBUTEROL

REACTIONS (8)
  - Chest pain [None]
  - Chest discomfort [None]
  - Anxiety [None]
  - Agitation [None]
  - Confusional state [None]
  - Somnolence [None]
  - Treatment noncompliance [None]
  - Troponin increased [None]

NARRATIVE: CASE EVENT DATE: 20250818
